FAERS Safety Report 4288652-0 (Version None)
Quarter: 2004Q1

REPORT INFORMATION
  Report Type: 
  Country: None (occurrence: None)
  Receive Date: 20040205
  Receipt Date: 20040123
  Transmission Date: 20041129
  Serious: Yes (Hospitalization)
  Sender: FDA-Public Use
  Company Number: 200401462

PATIENT
  Age: 8 Year
  Sex: Male

DRUGS (1)
  1. IMODIUM [Suspect]
     Indication: DIARRHOEA
     Dosage: 2 MG X 15 DAILY PO
     Route: 048

REACTIONS (2)
  - OVERDOSE [None]
  - PANCREATIC ENZYMES INCREASED [None]
